FAERS Safety Report 7302890-1 (Version None)
Quarter: 2011Q1

REPORT INFORMATION
  Report Type: 
  Country: None (occurrence: None)
  Receive Date: 20110218
  Receipt Date: 20110210
  Transmission Date: 20110831
  Serious: Yes (Disabling, Other)
  Sender: FDA-Public Use
  Company Number: CA-MERCK-1102USA01323

PATIENT
  Age: 75 Year
  Sex: Female
  Weight: 86 kg

DRUGS (13)
  1. ARIMIDEX [Concomitant]
     Route: 048
  2. CYCLOBENZAPRINE HYDROCHLORIDE [Concomitant]
     Route: 048
  3. CALCIUM (UNSPECIFIED) [Concomitant]
     Route: 048
  4. ASAPHEN [Concomitant]
     Route: 048
  5. EURO-D [Concomitant]
     Route: 048
  6. TYLENOL [Concomitant]
     Route: 048
  7. FOSAMAX [Concomitant]
     Route: 048
  8. APO-SIMVASTATIN [Suspect]
     Route: 065
  9. SALAGEN [Concomitant]
     Route: 048
  10. ZOCOR [Suspect]
     Route: 048
  11. LOSEC (OMEPRAZOLE) [Concomitant]
     Route: 048
  12. AMLODIPINE [Concomitant]
     Route: 048
  13. SERC [Concomitant]
     Route: 048

REACTIONS (10)
  - PAIN IN EXTREMITY [None]
  - NAUSEA [None]
  - SENSATION OF HEAVINESS [None]
  - OEDEMA PERIPHERAL [None]
  - HYPOAESTHESIA [None]
  - GAIT DISTURBANCE [None]
  - VARICOSE VEIN RUPTURED [None]
  - MUSCULAR WEAKNESS [None]
  - BACK PAIN [None]
  - FEELING ABNORMAL [None]
